FAERS Safety Report 13243594 (Version 21)
Quarter: 2020Q2

REPORT INFORMATION
  Report Type: Report from Study
  Country: US (occurrence: US)
  Receive Date: 20170216
  Receipt Date: 20200430
  Transmission Date: 20200713
  Serious: Yes (Death, Hospitalization, Other)
  Sender: FDA-Public Use
  Company Number: US-ACTELION-A-US2015-119150

PATIENT
  Age: 62 Year
  Sex: Female
  Weight: 62.59 kg

DRUGS (17)
  1. SILDENAFIL CITRATE. [Concomitant]
     Active Substance: SILDENAFIL CITRATE
     Dosage: 20 MG, TID
  2. HYDROXYZINE PAM [Concomitant]
     Active Substance: HYDROXYZINE PAMOATE
  3. AZITHROMYCIN ANHYDROUS. [Concomitant]
     Active Substance: AZITHROMYCIN ANHYDROUS
  4. CEFDINIR. [Concomitant]
     Active Substance: CEFDINIR
  5. BENZONATATE. [Concomitant]
     Active Substance: BENZONATATE
  6. MORPHINE [Concomitant]
     Active Substance: MORPHINE
  7. OPSUMIT [Suspect]
     Active Substance: MACITENTAN
     Indication: PULMONARY ARTERIAL HYPERTENSION
     Dosage: 10 MG, QD
     Route: 048
     Dates: start: 20150501, end: 20191008
  8. PRILOSEC [Concomitant]
     Active Substance: OMEPRAZOLE MAGNESIUM
  9. AZATHIOPRINE. [Concomitant]
     Active Substance: AZATHIOPRINE
  10. LEVOFLOXACIN. [Concomitant]
     Active Substance: LEVOFLOXACIN
  11. OMEPRAZOLE. [Concomitant]
     Active Substance: OMEPRAZOLE
  12. VELETRI [Suspect]
     Active Substance: EPOPROSTENOL
     Dosage: UNK
     Route: 042
  13. VELETRI [Suspect]
     Active Substance: EPOPROSTENOL
     Indication: PULMONARY ARTERIAL HYPERTENSION
     Dosage: 15 NG/KG, PER MIN
     Route: 042
  14. MIRTAZAPINE. [Concomitant]
     Active Substance: MIRTAZAPINE
  15. LORAZEPAM. [Concomitant]
     Active Substance: LORAZEPAM
  16. PREDNISONE. [Concomitant]
     Active Substance: PREDNISONE
  17. SERTRALINE [Concomitant]
     Active Substance: SERTRALINE HYDROCHLORIDE

REACTIONS (42)
  - Nausea [Recovered/Resolved with Sequelae]
  - Suicidal ideation [Unknown]
  - Orthopnoea [Recovered/Resolved with Sequelae]
  - Oedema peripheral [Recovered/Resolved]
  - Infection [Unknown]
  - Pulmonary congestion [Unknown]
  - Humerus fracture [Unknown]
  - Dyspnoea [Recovered/Resolved]
  - Neoplasm malignant [Unknown]
  - Nasopharyngitis [Recovered/Resolved]
  - Device alarm issue [Unknown]
  - Loss of consciousness [Unknown]
  - Memory impairment [Unknown]
  - Small cell lung cancer [Fatal]
  - Device occlusion [Unknown]
  - Product dose omission [Unknown]
  - Palpitations [Unknown]
  - Dyspepsia [Unknown]
  - Unevaluable event [Unknown]
  - Tachycardia [Unknown]
  - Pyrexia [Recovered/Resolved with Sequelae]
  - Ear pain [Recovered/Resolved]
  - Pneumonia [Recovered/Resolved with Sequelae]
  - Device breakage [Recovered/Resolved]
  - Decreased appetite [Unknown]
  - Headache [Unknown]
  - Dyspnoea exertional [Unknown]
  - Influenza [Recovered/Resolved]
  - Rhinorrhoea [Recovered/Resolved]
  - Fatigue [Recovered/Resolved with Sequelae]
  - Chest pain [Unknown]
  - Anxiety [Unknown]
  - Cough [Recovered/Resolved with Sequelae]
  - Pulmonary arterial hypertension [Unknown]
  - Vomiting [Recovered/Resolved with Sequelae]
  - Device related thrombosis [Unknown]
  - Diarrhoea [Unknown]
  - Hypoaesthesia [Unknown]
  - Staphylococcus test positive [Recovered/Resolved]
  - Pulmonary mass [Unknown]
  - Flushing [Unknown]
  - Gastrooesophageal reflux disease [Unknown]

NARRATIVE: CASE EVENT DATE: 20150507
